FAERS Safety Report 7575448-7 (Version None)
Quarter: 2011Q2

REPORT INFORMATION
  Report Type: 
  Country: None (occurrence: None)
  Receive Date: 20110627
  Receipt Date: 20110613
  Transmission Date: 20111010
  Serious: Yes (Hospitalization)
  Sender: FDA-Public Use
  Company Number: US-ELI_LILLY_AND_COMPANY-US201106001426

PATIENT
  Sex: Female

DRUGS (3)
  1. HUMALOG [Suspect]
     Indication: TYPE 2 DIABETES MELLITUS
     Dosage: 30 U, TID
     Dates: start: 20070101
  2. HUMALOG [Suspect]
     Dosage: 30 U, TID
     Dates: start: 20070101
  3. LANTUS [Concomitant]
     Dosage: UNK

REACTIONS (5)
  - INJECTION SITE HAEMORRHAGE [None]
  - HYPERGLYCAEMIA [None]
  - HOSPITALISATION [None]
  - DRUG DOSE OMISSION [None]
  - INJECTION SITE HAEMATOMA [None]
